FAERS Safety Report 4598021-1 (Version None)
Quarter: 2005Q1

REPORT INFORMATION
  Report Type: 
  Country: None (occurrence: None)
  Receive Date: 20050204
  Receipt Date: 20040830
  Transmission Date: 20050727
  Serious: Yes (Other)
  Sender: FDA-Public Use
  Company Number: PHEH2004US09512

PATIENT
  Age: 19 Year
  Sex: Male

DRUGS (1)
  1. CLOZARIL [Suspect]
     Dosage: ORAL
     Route: 048
     Dates: start: 20040801, end: 20040801

REACTIONS (4)
  - ACCIDENTAL EXPOSURE [None]
  - ASTHENIA [None]
  - HYPOTENSION [None]
  - TACHYCARDIA [None]
